FAERS Safety Report 4355365-6 (Version None)
Quarter: 2004Q2

REPORT INFORMATION
  Report Type: 
  Country: None (occurrence: None)
  Receive Date: 20040504
  Receipt Date: 20040421
  Transmission Date: 20050107
  Serious: Yes (Hospitalization)
  Sender: FDA-Public Use
  Company Number: BE-JNJFOC-20040400872

PATIENT
  Age: 16 Year
  Sex: Male

DRUGS (1)
  1. CONCERTA [Suspect]
     Indication: LEARNING DISABILITY
     Dosage: ORAL
     Route: 048
     Dates: start: 20030919

REACTIONS (11)
  - AGITATION [None]
  - BURNS SECOND DEGREE [None]
  - HYPOAESTHESIA ORAL [None]
  - INSOMNIA [None]
  - LOGORRHOEA [None]
  - MEMORY IMPAIRMENT [None]
  - MUSCLE TWITCHING [None]
  - MYDRIASIS [None]
  - OVERDOSE [None]
  - SELF MUTILATION [None]
  - VISION BLURRED [None]
